FAERS Safety Report 15163544 (Version 1)
Quarter: 2018Q3

REPORT INFORMATION
  Report Type: Spontaneous
  Country: ES (occurrence: ES)
  Receive Date: 20180719
  Receipt Date: 20180719
  Transmission Date: 20181010
  Serious: Yes (Hospitalization)
  Sender: FDA-Public Use
  Company Number: ES-TEVA-2018-ES-928491

PATIENT
  Age: 67 Year
  Sex: Male
  Weight: 110 kg

DRUGS (12)
  1. GLIMEPIRIDA (7395A) [Concomitant]
     Route: 048
  2. ACETILSALICILICO ACIDO (176A) [Concomitant]
     Active Substance: ASPIRIN
     Dosage: 100 MILLIGRAM DAILY;
     Route: 048
  3. ZYLORIC 100 MG COMPRIMIDOS, 100 COMPRIMIDOS [Concomitant]
     Dosage: 100 MILLIGRAM DAILY;
     Route: 048
  4. PANTOPRAZOL (7275A) [Concomitant]
     Active Substance: PANTOPRAZOLE
     Dosage: 40 MILLIGRAM DAILY;
     Route: 048
  5. RESINCALCIO POLVO PARA SUSPENSION ORAL, 1 FRASCO DE 400 G [Concomitant]
     Dosage: 15 GRAM DAILY;
     Route: 048
  6. SINTROM [Interacting]
     Active Substance: ACENOCOUMAROL
     Route: 048
     Dates: start: 2017
  7. DOXAZOSINA (2387A) [Concomitant]
     Active Substance: DOXAZOSIN MESYLATE
     Route: 048
  8. MOXIFLOXACINO (1119A) [Suspect]
     Active Substance: MOXIFLOXACIN HYDROCHLORIDE
     Dosage: 400 MILLIGRAM DAILY;
     Route: 048
     Dates: start: 20180207, end: 20180211
  9. TARDYFERON 80 MG COMPRIMIDOS RECUBIERTOS, 30 COMPRIMIDOS [Concomitant]
     Dosage: 80 MILLIGRAM DAILY;
     Route: 048
  10. FUROSEMIDA (1615A) [Concomitant]
     Active Substance: FUROSEMIDE
     Route: 048
  11. MANIDIPINO (2841A) [Concomitant]
     Dosage: 20 MILLIGRAM DAILY;
     Route: 048
  12. LOBIVON 5 MG COMPRIMIDOS, 28 COMPRIMIDOS [Concomitant]
     Dosage: 5 MILLIGRAM DAILY;
     Route: 048

REACTIONS (2)
  - Anaemia [Recovered/Resolved]
  - Drug interaction [Recovered/Resolved]

NARRATIVE: CASE EVENT DATE: 20180207
